FAERS Safety Report 9085630 (Version 1)
Quarter: 2013Q1

REPORT INFORMATION
  Report Type: Spontaneous
  Country: US (occurrence: US)
  Receive Date: 20130131
  Receipt Date: 20130131
  Transmission Date: 20140127
  Serious: No
  Sender: FDA-Public Use
  Company Number: US-BAYER-2013-013205

PATIENT
  Age: 54 Year
  Sex: Female

DRUGS (1)
  1. BETASERON [Suspect]
     Indication: MULTIPLE SCLEROSIS
     Dosage: 0.25 UNK, QOD
     Route: 058
     Dates: start: 2008

REACTIONS (5)
  - Chills [None]
  - Myalgia [None]
  - Dry skin [None]
  - Injection site erythema [None]
  - Injection site swelling [None]
